FAERS Safety Report 14586431 (Version 1)
Quarter: 2018Q1

REPORT INFORMATION
  Report Type: Spontaneous
  Country: DE (occurrence: DE)
  Receive Date: 20180301
  Receipt Date: 20180301
  Transmission Date: 20180509
  Serious: Yes (Hospitalization)
  Sender: FDA-Public Use
  Company Number: DE-TORRENT-00007881

PATIENT
  Age: 75 Year
  Sex: Female

DRUGS (3)
  1. LIORAN [Interacting]
     Active Substance: HERBALS\HOMEOPATHICS\PASSIFLORA INCARNATA FLOWER
     Indication: RESTLESSNESS
     Dosage: 1 DOSAGE FORMS DAILY; IN THE EVENING
     Route: 065
     Dates: start: 20170808, end: 20170827
  2. RISPERIDON [Interacting]
     Active Substance: RISPERIDONE
     Indication: DEMENTIA
     Dosage: .75 MILLIGRAM DAILY;
     Route: 048
     Dates: start: 20161201
  3. LAMOTRIGIN [Suspect]
     Active Substance: LAMOTRIGINE
     Indication: EPILEPSY
     Dosage: 300 MILLIGRAM DAILY;
     Route: 048
     Dates: start: 20161201

REACTIONS (4)
  - Fatigue [Recovered/Resolved]
  - Gait disturbance [Recovered/Resolved]
  - Fall [Recovered/Resolved]
  - Drug interaction [Unknown]
